FAERS Safety Report 15245265 (Version 2)
Quarter: 2018Q3

REPORT INFORMATION
  Report Type: Spontaneous
  Country: CA (occurrence: CA)
  Receive Date: 20180806
  Receipt Date: 20180821
  Transmission Date: 20181010
  Serious: Yes (Other)
  Sender: FDA-Public Use
  Company Number: CA-PFIZER INC-2018308905

PATIENT
  Age: 41 Year
  Sex: Female

DRUGS (3)
  1. SOMATULINE [Concomitant]
     Active Substance: LANREOTIDE ACETATE
     Dosage: 120 MG, CYCLIC (EVERY 28 DAYS)
     Route: 030
  2. SYNTHROID [Concomitant]
     Active Substance: LEVOTHYROXINE SODIUM
     Dosage: 0.75 MG, 1X/DAY
     Route: 048
  3. CORTEF [Suspect]
     Active Substance: HYDROCORTISONE
     Dosage: 15 MG, DAILY
     Route: 048

REACTIONS (12)
  - Acromegaly [Unknown]
  - Blood growth hormone increased [Unknown]
  - Neck pain [Not Recovered/Not Resolved]
  - Arthritis [Unknown]
  - Headache [Not Recovered/Not Resolved]
  - Sleep disorder [Not Recovered/Not Resolved]
  - Eye disorder [Not Recovered/Not Resolved]
  - Syncope [Unknown]
  - Insulin-like growth factor increased [Unknown]
  - Fatigue [Not Recovered/Not Resolved]
  - Heart rate irregular [Not Recovered/Not Resolved]
  - Back pain [Not Recovered/Not Resolved]

NARRATIVE: CASE EVENT DATE: 201704
